FAERS Safety Report 22128976 (Version 2)
Quarter: 2025Q2

REPORT INFORMATION
  Report Type: Report from Study
  Country: FR (occurrence: FR)
  Receive Date: 20230323
  Receipt Date: 20250521
  Transmission Date: 20250717
  Serious: Yes (Hospitalization, Other)
  Sender: AUROBINDO
  Company Number: FR-MLMSERVICE-20220103-3299118-1

PATIENT
  Age: 14 Year
  Sex: Male

DRUGS (8)
  1. AMISULPRIDE [Suspect]
     Active Substance: AMISULPRIDE
     Indication: Schizophrenia
     Route: 065
  2. AMISULPRIDE [Suspect]
     Active Substance: AMISULPRIDE
     Indication: Autism spectrum disorder
  3. ARIPIPRAZOLE [Suspect]
     Active Substance: ARIPIPRAZOLE
     Indication: Schizophrenia
     Dosage: 15 MG/DAY
     Route: 065
  4. ARIPIPRAZOLE [Suspect]
     Active Substance: ARIPIPRAZOLE
     Dosage: 10 MG/DAY
     Route: 065
  5. CLOZAPINE [Interacting]
     Active Substance: CLOZAPINE
     Indication: Mental disorder
     Route: 065
  6. FLUVOXAMINE [Interacting]
     Active Substance: FLUVOXAMINE
     Indication: Psychotic disorder
     Route: 065
  7. METHYLPHENIDATE [Suspect]
     Active Substance: METHYLPHENIDATE
     Indication: Attention deficit hyperactivity disorder
     Route: 065
  8. HALOPERIDOL LACTATE [Suspect]
     Active Substance: HALOPERIDOL LACTATE
     Indication: Mental disorder
     Route: 065

REACTIONS (8)
  - Hyperprolactinaemia [Recovered/Resolved]
  - Hallucination [Recovering/Resolving]
  - Delusion [Recovering/Resolving]
  - Intentional product use issue [Unknown]
  - No adverse event [Unknown]
  - Off label use [Unknown]
  - Potentiating drug interaction [Unknown]
  - Therapy non-responder [Unknown]
